FAERS Safety Report 19578188 (Version 4)
Quarter: 2021Q3

REPORT INFORMATION
  Report Type: Spontaneous
  Country: ES (occurrence: ES)
  Receive Date: 20210719
  Receipt Date: 20210825
  Transmission Date: 20211014
  Serious: Yes (Other)
  Sender: FDA-Public Use
  Company Number: ES-ALXN-A202108051

PATIENT
  Age: 15 Month
  Sex: Male
  Weight: 8.5 kg

DRUGS (2)
  1. SOLIRIS [Suspect]
     Active Substance: ECULIZUMAB
     Indication: HAEMOLYTIC URAEMIC SYNDROME
     Dosage: 300 MG, SINGLE
     Route: 042
     Dates: start: 20210630, end: 20210630
  2. SOLIRIS [Suspect]
     Active Substance: ECULIZUMAB
     Indication: GASTROENTERITIS ESCHERICHIA COLI
     Dosage: UNK
     Route: 065
     Dates: start: 20210701, end: 20210701

REACTIONS (13)
  - Haemolysis [Recovering/Resolving]
  - Blood bilirubin increased [Recovering/Resolving]
  - Acute kidney injury [Recovering/Resolving]
  - Haptoglobin decreased [Recovering/Resolving]
  - Blood lactate dehydrogenase increased [Recovering/Resolving]
  - Hypertension [Recovering/Resolving]
  - Chromaturia [Recovering/Resolving]
  - Condition aggravated [Recovering/Resolving]
  - Haematuria [Recovering/Resolving]
  - Anaemia [Recovering/Resolving]
  - Off label use [Unknown]
  - Escherichia test positive [Recovered/Resolved]
  - Proteinuria [Recovering/Resolving]

NARRATIVE: CASE EVENT DATE: 202107
